FAERS Safety Report 4452605-X (Version None)
Quarter: 2004Q3

REPORT INFORMATION
  Report Type: 
  Country: None (occurrence: None)
  Receive Date: 20040916
  Receipt Date: 20040908
  Transmission Date: 20050211
  Serious: Yes (Death, Life-Threatening)
  Sender: FDA-Public Use
  Company Number: 2004AP01488

PATIENT
  Age: 51 Year
  Sex: Female

DRUGS (12)
  1. IRESSA [Suspect]
     Indication: LUNG ADENOCARCINOMA
     Dosage: 250 MG DAILY PO
     Route: 048
     Dates: start: 20020912, end: 20021121
  2. IRESSA [Suspect]
     Indication: NON-SMALL CELL LUNG CANCER
     Dosage: 250 MG DAILY PO
     Route: 048
     Dates: start: 20020912, end: 20021121
  3. NAUZELIN [Concomitant]
  4. LOPEMIN [Concomitant]
  5. PREDONINE [Concomitant]
  6. ZOVIRAX [Concomitant]
  7. ARASENA A [Concomitant]
  8. LOXONIN [Concomitant]
  9. UFT [Concomitant]
  10. CISPLATIN [Concomitant]
  11. MITOMYCIN-C BULK POWDER [Concomitant]
  12. RADIATION THERAPY [Concomitant]

REACTIONS (2)
  - INTERSTITIAL LUNG DISEASE [None]
  - LYMPHANGIOSIS CARCINOMATOSA [None]
